FAERS Safety Report 11654903 (Version 1)
Quarter: 2015Q4

REPORT INFORMATION
  Report Type: Report from Study
  Country: FR (occurrence: GB)
  Receive Date: 20151023
  Receipt Date: 20151023
  Transmission Date: 20160304
  Serious: Yes (Death)
  Sender: FDA-Public Use
  Company Number: FR-ROCHE-1648342

PATIENT

DRUGS (2)
  1. DIAZEPAM. [Suspect]
     Active Substance: DIAZEPAM
     Indication: ANXIETY
     Route: 065
  2. DIAZEPAM. [Suspect]
     Active Substance: DIAZEPAM
     Indication: INSOMNIA

REACTIONS (17)
  - Nervous system disorder [Fatal]
  - Gastrointestinal disorder [Fatal]
  - Infection parasitic [Fatal]
  - Blood disorder [Fatal]
  - Respiratory disorder [Fatal]
  - Metabolic disorder [Fatal]
  - Cardiovascular disorder [Fatal]
  - Musculoskeletal disorder [Fatal]
  - Infection [Fatal]
  - Neoplasm [Fatal]
  - Endocrine disorder [Fatal]
  - Malnutrition [Fatal]
  - Urogenital disorder [Fatal]
  - Ill-defined disorder [Fatal]
  - Immune system disorder [Fatal]
  - Mental disorder [Fatal]
  - Skin disorder [Fatal]
